FAERS Safety Report 8964222 (Version 1)
Quarter: 2012Q4

REPORT INFORMATION
  Report Type: 
  Country: IT (occurrence: IT)
  Receive Date: 20121214
  Receipt Date: 20121214
  Transmission Date: 20130627
  Serious: Yes (Other)
  Sender: FDA-Public Use
  Company Number: IT-ASTRAZENECA-2012SE91715

PATIENT
  Age: 26122 Day
  Sex: Female
  Weight: 90 kg

DRUGS (14)
  1. BRILIQUE [Suspect]
     Indication: THROMBOSIS PROPHYLAXIS
     Route: 048
     Dates: start: 20120925, end: 20121109
  2. CORLENTOR [Concomitant]
     Indication: MYOCARDIAL ISCHAEMIA
     Route: 048
     Dates: start: 20121019, end: 20121130
  3. ASCRIPTIN [Concomitant]
     Indication: MYOCARDIAL ISCHAEMIA
     Route: 048
     Dates: start: 20121110, end: 20121130
  4. CARDICOR [Concomitant]
     Indication: MYOCARDIAL ISCHAEMIA
     Route: 048
     Dates: start: 20121019, end: 20121130
  5. CITOFOLIN [Concomitant]
     Indication: ANAEMIA
     Route: 048
     Dates: start: 20121019, end: 20121130
  6. PANTORC [Concomitant]
     Indication: PROPHYLAXIS AGAINST GASTROINTESTINAL ULCER
     Route: 048
     Dates: start: 20121019, end: 20121130
  7. LASIX [Concomitant]
     Indication: RENAL FAILURE ACUTE
     Route: 048
     Dates: start: 20121019, end: 20121130
  8. THEO-DUR [Concomitant]
     Indication: BRONCHIAL DISORDER
     Route: 048
     Dates: start: 20121105, end: 20121119
  9. ZYLORIC [Concomitant]
     Indication: HYPERURICAEMIA
     Route: 048
     Dates: start: 20121019, end: 20121130
  10. FERRO-GRAD [Concomitant]
     Indication: HYPOCHROMIC ANAEMIA
     Route: 048
     Dates: start: 20121019, end: 20121106
  11. FERLIXIT [Concomitant]
     Indication: HYPOCHROMIC ANAEMIA
     Dosage: 62.5 mg/5 ml solution for oral and intravenous use
     Route: 041
     Dates: start: 20121110, end: 20121130
  12. SPIRIVA [Concomitant]
     Indication: BRONCHIAL DISORDER
     Dosage: 18 mcg capsules with inhalation device
     Route: 002
     Dates: start: 20121019, end: 20121130
  13. BINOCRIT [Concomitant]
     Indication: HYPOCHROMIC ANAEMIA
     Dosage: 10000 IU/ 1 ml injectable solution for subcutaneous use
     Route: 058
     Dates: start: 20121105, end: 20121130
  14. TORVAST [Concomitant]
     Indication: HYPERCHOLESTEROLAEMIA
     Route: 048
     Dates: start: 20121019, end: 20121130

REACTIONS (1)
  - Neutropenia [Recovered/Resolved]
